FAERS Safety Report 17686363 (Version 1)
Quarter: 2020Q2

REPORT INFORMATION
  Report Type: Spontaneous
  Country: GB (occurrence: GB)
  Receive Date: 20200420
  Receipt Date: 20200420
  Transmission Date: 20200714
  Serious: Yes (Other)
  Sender: FDA-Public Use
  Company Number: GB-BAUSCH-BL-2020-010667

PATIENT
  Age: 9 Year
  Sex: Female
  Weight: 28.7 kg

DRUGS (14)
  1. INFLIXIMAB [Concomitant]
     Active Substance: INFLIXIMAB
     Indication: IRIDOCYCLITIS
     Route: 065
  2. PREDNISOLONE. [Suspect]
     Active Substance: PREDNISOLONE
     Dosage: PROGRESSIVELY REDUCED AND DISCONTINUED OVER 5 MONTHS
     Route: 048
  3. MYCOPHENOLATE MOFETIL. [Concomitant]
     Active Substance: MYCOPHENOLATE MOFETIL
     Dosage: FURTHER 12 MONTHS; INCREASED
     Route: 065
  4. PREDNISOLONE. [Suspect]
     Active Substance: PREDNISOLONE
     Dosage: CONTINUED WITH SMALL DOSE
     Route: 061
  5. PREDNISOLONE. [Suspect]
     Active Substance: PREDNISOLONE
     Dosage: ON ALTERNATE DAYS
     Route: 061
  6. PREDNISOLONE. [Suspect]
     Active Substance: PREDNISOLONE
     Dosage: THIS DOSE TAPERED AFTER 3 MONTHS
     Route: 048
  7. DEXAMETHASONE. [Suspect]
     Active Substance: DEXAMETHASONE
     Indication: IRIDOCYCLITIS
     Route: 061
  8. PREDNISOLONE. [Suspect]
     Active Substance: PREDNISOLONE
     Indication: IRIDOCYCLITIS
     Route: 061
  9. PREDNISOLONE. [Suspect]
     Active Substance: PREDNISOLONE
     Dosage: ON ALTERNATE DAYS
     Route: 048
  10. METHYLPREDNISOLONE. [Suspect]
     Active Substance: METHYLPREDNISOLONE
     Indication: IRIDOCYCLITIS
     Dosage: THREE PULSES OF HIGH-DOSE INTRAVENOUS METHYLPREDNISOLONE
     Route: 042
  11. MYCOPHENOLATE MOFETIL. [Concomitant]
     Active Substance: MYCOPHENOLATE MOFETIL
     Indication: IRIDOCYCLITIS
     Route: 065
  12. PREDNISOLONE. [Suspect]
     Active Substance: PREDNISOLONE
     Indication: IRIDOCYCLITIS
     Dosage: 1 MG/KG
     Route: 048
  13. MYCOPHENOLATE MOFETIL. [Concomitant]
     Active Substance: MYCOPHENOLATE MOFETIL
     Dosage: GRADUALLY INCREASED
     Route: 065
  14. ADALIMUMAB [Concomitant]
     Active Substance: ADALIMUMAB
     Indication: IRIDOCYCLITIS
     Route: 058

REACTIONS (7)
  - Hypertension [Recovered/Resolved]
  - Increased appetite [Unknown]
  - Cushing^s syndrome [Unknown]
  - Condition aggravated [Unknown]
  - Sleep disorder [Unknown]
  - Weight increased [Unknown]
  - Intraocular pressure increased [Recovered/Resolved]
